FAERS Safety Report 8404837-3 (Version None)
Quarter: 2012Q2

REPORT INFORMATION
  Report Type: 
  Country: None (occurrence: None)
  Receive Date: 20120601
  Receipt Date: 20120524
  Transmission Date: 20120825
  Serious: Yes (Hospitalization)
  Sender: FDA-Public Use
  Company Number: FR-RB-040800-12

PATIENT
  Sex: Male

DRUGS (1)
  1. SUBUTEX [Suspect]
     Indication: DRUG DEPENDENCE
     Dosage: UNIQUE INTAKE OF 6 OR 9 TABLETS
     Route: 048
     Dates: start: 20120119, end: 20120119

REACTIONS (4)
  - MYDRIASIS [None]
  - HYPERVIGILANCE [None]
  - TREMOR [None]
  - DISUSE SYNDROME [None]
